FAERS Safety Report 4330030-X (Version None)
Quarter: 2004Q1

REPORT INFORMATION
  Report Type: 
  Country: None (occurrence: None)
  Receive Date: 20040329
  Receipt Date: 20040317
  Transmission Date: 20041129
  Serious: No
  Sender: FDA-Public Use
  Company Number: 2004AP01740

PATIENT
  Age: 1 Month
  Sex: Male

DRUGS (4)
  1. XYLOCAINE [Suspect]
     Indication: CONVULSION NEONATAL
     Dosage: 350 MG DAILY IVD
     Route: 041
     Dates: start: 20040214, end: 20040307
  2. PHENOBAL [Concomitant]
  3. MIDAZOLAM HCL [Concomitant]
  4. DEPAKENE [Concomitant]

REACTIONS (8)
  - BLOOD CALCIUM DECREASED [None]
  - BLOOD MAGNESIUM INCREASED [None]
  - BLOOD POTASSIUM INCREASED [None]
  - BLOOD PRESSURE DECREASED [None]
  - DRUG INEFFECTIVE [None]
  - DRUG TOXICITY [None]
  - ELECTROCARDIOGRAM T WAVE ABNORMAL [None]
  - VENTRICULAR ARRHYTHMIA [None]
